FAERS Safety Report 8171923-5 (Version None)
Quarter: 2012Q1

REPORT INFORMATION
  Report Type: 
  Country: None (occurrence: None)
  Receive Date: 20120228
  Receipt Date: 20120221
  Transmission Date: 20120608
  Serious: Yes (Death, Hospitalization, Other)
  Sender: FDA-Public Use
  Company Number: FR-CELGENEUS-056-50794-11072985

PATIENT
  Sex: Female

DRUGS (24)
  1. FLUCONAZOLE [Concomitant]
     Indication: ORAL CANDIDIASIS
     Dosage: 100 MILLIGRAM
     Route: 048
     Dates: start: 20110627, end: 20111029
  2. FOLIC ACID [Concomitant]
     Route: 065
  3. ESIDRIX [Concomitant]
     Route: 065
  4. PANTOPRAZOLE [Concomitant]
     Route: 065
  5. INNOHEP [Concomitant]
     Route: 065
     Dates: start: 20110907
  6. DURAGESIC-100 [Concomitant]
     Indication: PAIN
     Route: 065
  7. REVLIMID [Suspect]
     Indication: MYELODYSPLASTIC SYNDROME
     Dosage: 5 MILLIGRAM
     Route: 048
     Dates: start: 20110627, end: 20110717
  8. FLUCONAZOLE [Concomitant]
     Indication: PROPHYLAXIS
  9. DEXAMETHASONE [Concomitant]
     Route: 065
     Dates: start: 20111003, end: 20111011
  10. COLCHICINE [Concomitant]
     Route: 065
  11. PREDNISONE TAB [Concomitant]
     Dosage: 20 MILLIGRAM
     Route: 065
     Dates: start: 20110922
  12. ACETAMINOPHEN [Concomitant]
     Indication: PAIN
     Route: 065
  13. VIDAZA [Suspect]
     Indication: MYELODYSPLASTIC SYNDROME
     Dosage: 130 MILLIGRAM
     Route: 058
     Dates: start: 20110627, end: 20110701
  14. SOLU-MEDROL [Concomitant]
     Dosage: 60 MILLIGRAM
     Route: 065
     Dates: start: 20110812, end: 20111029
  15. LOVENOX [Concomitant]
     Route: 058
  16. ATACAND [Concomitant]
     Route: 065
  17. CIPROFLOXACIN HCL [Concomitant]
     Route: 065
  18. VALACYCLOVIR HYDROCHLORIDE [Concomitant]
     Indication: PROPHYLAXIS
  19. TRAMADOL HCL [Concomitant]
     Route: 065
  20. VALACYCLOVIR HYDROCHLORIDE [Concomitant]
     Indication: ORAL CANDIDIASIS
     Dosage: 1000 MILLIGRAM
     Route: 048
     Dates: start: 20110627, end: 20111029
  21. ACUPAN [Concomitant]
     Indication: PAIN
     Route: 065
  22. SCOPOLAMINE [Concomitant]
     Route: 065
  23. TIENAMYCIN [Concomitant]
     Route: 065
  24. AMITRIPTYLINE HCL [Concomitant]
     Indication: ANXIETY
     Route: 065

REACTIONS (8)
  - FEBRILE NEUTROPENIA [None]
  - ARTHRITIS [None]
  - HAEMATOMA [None]
  - INFECTION [None]
  - MYELODYSPLASTIC SYNDROME TRANSFORMATION [None]
  - HAEMORRHAGE [None]
  - THROMBOCYTOPENIA [None]
  - ACUTE MYELOID LEUKAEMIA [None]
